FAERS Safety Report 5445241-X (Version None)
Quarter: 2007Q3

REPORT INFORMATION
  Report Type: 
  Country: None (occurrence: None)
  Receive Date: 20070906
  Receipt Date: 20070827
  Transmission Date: 20080115
  Serious: Yes (Other)
  Sender: FDA-Public Use
  Company Number: US-PFIZER INC-2007071552

PATIENT
  Age: 28 Year
  Sex: Male

DRUGS (2)
  1. INHALED HUMAN INSULIN [Suspect]
     Indication: DIABETES MELLITUS
     Dosage: TEXT:4MG WITH EACH MEAL
  2. LANTUS [Concomitant]
     Indication: DIABETES MELLITUS
     Route: 058

REACTIONS (3)
  - EYE PRURITUS [None]
  - EYE SWELLING [None]
  - URTICARIA [None]
